FAERS Safety Report 6233077-1 (Version None)
Quarter: 2009Q2

REPORT INFORMATION
  Report Type: 
  Country: None (occurrence: None)
  Receive Date: 20090617
  Receipt Date: 20090612
  Transmission Date: 20091009
  Serious: Yes (Hospitalization)
  Sender: FDA-Public Use
  Company Number: ES-WYE-H09273509

PATIENT
  Sex: Male
  Weight: 81 kg

DRUGS (2)
  1. TEMSIROLIMUS [Suspect]
     Indication: RENAL CANCER
     Route: 042
     Dates: start: 20090126, end: 20090428
  2. BEVACIZUMAB [Suspect]
     Indication: RENAL CANCER
     Route: 042
     Dates: start: 20090126, end: 20090428

REACTIONS (6)
  - MUCOSAL INFLAMMATION [None]
  - MYOCARDIAL DEPRESSION [None]
  - PNEUMONITIS [None]
  - PULMONARY HYPERTENSION [None]
  - RENAL FAILURE [None]
  - RESPIRATORY FAILURE [None]
